FAERS Safety Report 6424183-7 (Version None)
Quarter: 2009Q4

REPORT INFORMATION
  Report Type: 
  Country: None (occurrence: None)
  Receive Date: 20091102
  Receipt Date: 20091021
  Transmission Date: 20100525
  Serious: Yes (Hospitalization)
  Sender: FDA-Public Use
  Company Number: DE-PFIZER INC-2009266604

PATIENT
  Age: 74 Year
  Sex: Male
  Weight: 70 kg

DRUGS (4)
  1. LYRICA [Suspect]
     Indication: HERPES ZOSTER
     Dosage: 75 MG, 1X/DAY
     Route: 048
     Dates: start: 20090827, end: 20090829
  2. LYRICA [Suspect]
     Indication: NEURALGIA
  3. CARBAMAZEPINE [Concomitant]
     Dosage: 400 UNK, 2X/DAY
     Dates: end: 20090101
  4. TRAMADOL HYDROCHLORIDE [Concomitant]
     Dosage: 30 GTT, AS NEEDED
     Route: 048
     Dates: start: 20090814, end: 20090101

REACTIONS (4)
  - APATHY [None]
  - CONFUSIONAL STATE [None]
  - DIPLOPIA [None]
  - UNRESPONSIVE TO STIMULI [None]
